FAERS Safety Report 7060693-X (Version None)
Quarter: 2010Q4

REPORT INFORMATION
  Report Type: 
  Country: None (occurrence: None)
  Receive Date: 20101025
  Receipt Date: 20101014
  Transmission Date: 20110411
  Serious: Yes (Other)
  Sender: FDA-Public Use
  Company Number: JP-ROCHE-713710

PATIENT
  Sex: Female
  Weight: 46 kg

DRUGS (10)
  1. HERCEPTIN [Suspect]
     Indication: BREAST CANCER
     Route: 041
     Dates: start: 20100223, end: 20100223
  2. HERCEPTIN [Suspect]
     Route: 041
     Dates: start: 20100317, end: 20100519
  3. PROMAC [Concomitant]
     Route: 048
     Dates: start: 20100223, end: 20100315
  4. SAIREI-TO [Concomitant]
     Route: 048
     Dates: start: 20100304, end: 20100301
  5. LASIX [Concomitant]
     Route: 048
     Dates: start: 20100304, end: 20100308
  6. LORCAM [Concomitant]
     Route: 048
     Dates: start: 20100317, end: 20100427
  7. MUCOSTA [Concomitant]
     Route: 048
     Dates: start: 20100317, end: 20100427
  8. PYDOXAL [Concomitant]
     Route: 048
     Dates: start: 20100428, end: 20100528
  9. KLARICID [Concomitant]
     Route: 048
     Dates: start: 20100519, end: 20100525
  10. PL [Concomitant]
     Route: 048
     Dates: start: 20100519, end: 20100525

REACTIONS (1)
  - LIVER DISORDER [None]
